FAERS Safety Report 7329709-7 (Version None)
Quarter: 2011Q1

REPORT INFORMATION
  Report Type: 
  Country: None (occurrence: None)
  Receive Date: 20110303
  Receipt Date: 20110204
  Transmission Date: 20110831
  Serious: No
  Sender: FDA-Public Use
  Company Number: US-B.I. PHARMACEUTICALS,INC./RIDGEFIELD-2011-BP-02954BP

PATIENT
  Sex: Male

DRUGS (9)
  1. BENAZEPRIL [Concomitant]
     Indication: HYPERTENSION
  2. PROAIR HFA [Concomitant]
     Indication: CHRONIC OBSTRUCTIVE PULMONARY DISEASE
  3. ADVAIR DISKUS 100/50 [Concomitant]
     Indication: CHRONIC OBSTRUCTIVE PULMONARY DISEASE
  4. ZOLPIDEM [Concomitant]
     Indication: SLEEP DISORDER
  5. ATIVAN [Concomitant]
     Indication: ANXIETY
     Dosage: 2 MG
  6. SERTRALINE [Concomitant]
     Indication: ANXIETY
  7. SPIRIVA [Suspect]
     Indication: CHRONIC OBSTRUCTIVE PULMONARY DISEASE
     Dosage: 18 MCG
     Route: 055
     Dates: start: 20070101
  8. LORAZEPAM [Concomitant]
     Indication: ANXIETY
  9. AMLODIPINE [Concomitant]
     Indication: HYPERTENSION

REACTIONS (4)
  - PNEUMONIA [None]
  - DRUG INEFFECTIVE [None]
  - DYSPNOEA [None]
  - PERIPHERAL ARTERIAL OCCLUSIVE DISEASE [None]
